FAERS Safety Report 12629872 (Version 1)
Quarter: 2016Q3

REPORT INFORMATION
  Report Type: Not Available
  Country: US (occurrence: US)
  Receive Date: 20160808
  Receipt Date: 20160808
  Transmission Date: 20161109
  Serious: Yes (Hospitalization)
  Sender: FDA-Public Use
  Company Number: US-ANIPHARMA-2016-US-005694

PATIENT
  Age: 61 Year
  Sex: Female

DRUGS (5)
  1. FOLINIC ACID [Concomitant]
     Active Substance: LEUCOVORIN
     Dosage: UNKNOWN
     Route: 065
  2. OLANZAPINE. [Suspect]
     Active Substance: OLANZAPINE
     Dosage: 10 MG DAILY
     Route: 065
  3. OXALIPLATIN. [Concomitant]
     Active Substance: OXALIPLATIN
     Dosage: 60 MG PER SQUARE METER OVER 2 HOURS
     Route: 042
  4. LORAZEPAM (NON-SPECIFIC) [Suspect]
     Active Substance: LORAZEPAM
     Dosage: 1 MG 2 TO 3 TIMES DAILY
     Route: 048
  5. 5- FUOROURACIL [Concomitant]
     Dosage: 2000 MG PER SQUARE METER OVER 46 HOURS
     Route: 042

REACTIONS (5)
  - Hypotension [Recovered/Resolved]
  - Respiratory depression [Recovered/Resolved]
  - Delirium [Recovered/Resolved]
  - Drug interaction [Recovered/Resolved]
  - Toxicity to various agents [Recovered/Resolved]
